FAERS Safety Report 6263795-0 (Version None)
Quarter: 2009Q3

REPORT INFORMATION
  Report Type: 
  Country: None (occurrence: None)
  Receive Date: 20090710
  Receipt Date: 20090707
  Transmission Date: 20100115
  Serious: Yes (Death, Other)
  Sender: FDA-Public Use
  Company Number: PHHY2009BR27801

PATIENT
  Sex: Female

DRUGS (8)
  1. DIOVAN [Suspect]
     Indication: HYPERTENSION
     Dosage: 160 MG, UNK
     Route: 048
  2. DIOVAN [Suspect]
     Dosage: 320 MG
     Route: 048
  3. DIOVAN [Suspect]
     Dosage: 80 MG, UNK
     Route: 048
  4. DIOVAN HCT [Suspect]
     Indication: HYPERTENSION
     Dosage: 160/25 MG
     Route: 048
  5. DIOVAN HCT [Suspect]
     Dosage: 320/25 MG
  6. RASILEZ [Suspect]
     Indication: HYPERTENSION
     Dosage: 150 MG, UNK
     Route: 048
  7. RASILEZ [Suspect]
     Dosage: 300 MG, UNK
     Route: 048
  8. CHEMOTHERAPEUTICS NOS [Concomitant]

REACTIONS (4)
  - ANAL NEOPLASM [None]
  - COLOSTOMY [None]
  - PULMONARY EMBOLISM [None]
  - TUMOUR EXCISION [None]
